FAERS Safety Report 4672901-0 (Version None)
Quarter: 2005Q2

REPORT INFORMATION
  Report Type: 
  Country: None (occurrence: None)
  Receive Date: 20050524
  Receipt Date: 20050510
  Transmission Date: 20051028
  Serious: Yes (Life-Threatening, Hospitalization)
  Sender: FDA-Public Use
  Company Number: GXKR2005US01038

PATIENT
  Age: 43 Year
  Sex: Male

DRUGS (2)
  1. FLUOXETINE [Suspect]
     Indication: DEPRESSION
     Dosage: 20 MG QD
  2. ARIPIPRAZOLE (NGX) (ARIPIPRAZOLE) [Suspect]
     Indication: PSYCHOTIC DISORDER
     Dosage: 30 MG QD

REACTIONS (17)
  - AKATHISIA [None]
  - ALANINE AMINOTRANSFERASE INCREASED [None]
  - BLOOD CREATINE PHOSPHOKINASE INCREASED [None]
  - COGWHEEL RIGIDITY [None]
  - DEPRESSION [None]
  - DRUG INTERACTION [None]
  - LABILE BLOOD PRESSURE [None]
  - MASKED FACIES [None]
  - MUSCULOSKELETAL STIFFNESS [None]
  - NEUROLEPTIC MALIGNANT SYNDROME [None]
  - PSYCHOMOTOR RETARDATION [None]
  - PSYCHOTIC DISORDER [None]
  - PYREXIA [None]
  - RESTLESSNESS [None]
  - SALIVARY HYPERSECRETION [None]
  - TACHYCARDIA [None]
  - TREMOR [None]
